FAERS Safety Report 7123034-5 (Version None)
Quarter: 2010Q4

REPORT INFORMATION
  Report Type: 
  Country: None (occurrence: None)
  Receive Date: 20101125
  Receipt Date: 20101103
  Transmission Date: 20110411
  Serious: Yes (Hospitalization)
  Sender: FDA-Public Use
  Company Number: DE-AMGEN-DEUCT2010003209

PATIENT

DRUGS (2)
  1. ETANERCEPT [Suspect]
     Indication: ANKYLOSING SPONDYLITIS
     Dosage: 50 MG, QWK
     Route: 058
     Dates: start: 20090313
  2. ASTHMAHALER [Concomitant]

REACTIONS (2)
  - OEDEMA [None]
  - UROGENITAL INFECTION FUNGAL [None]
